FAERS Safety Report 25939373 (Version 1)
Quarter: 2025Q4

REPORT INFORMATION
  Report Type: Spontaneous
  Country: US (occurrence: US)
  Receive Date: 20251020
  Receipt Date: 20251020
  Transmission Date: 20260118
  Serious: Yes (Hospitalization, Other)
  Sender: SANDOZ
  Company Number: US-SANDOZ-SDZ2025US076052

PATIENT
  Age: 15 Year
  Sex: Female
  Weight: 60.1 kg

DRUGS (24)
  1. BLINATUMOMAB [Suspect]
     Active Substance: BLINATUMOMAB
     Indication: Product used for unknown indication
     Dosage: UNK
     Route: 065
  2. METHOTREXATE [Suspect]
     Active Substance: METHOTREXATE
     Indication: Product used for unknown indication
     Dosage: UNK
     Route: 065
  3. ACETAMINOPHEN [Concomitant]
     Active Substance: ACETAMINOPHEN
     Indication: Product used for unknown indication
     Dosage: 650 MG
     Route: 048
  4. ALBUTEROL [Concomitant]
     Active Substance: ALBUTEROL
     Indication: Wheezing
     Dosage: 2.5 MG NEBULIZER
     Route: 065
     Dates: start: 20250927
  5. ALBUTEROL [Concomitant]
     Active Substance: ALBUTEROL
     Indication: Dyspnoea
  6. ASCIMINIB [Concomitant]
     Active Substance: ASCIMINIB
     Indication: Product used for unknown indication
     Dosage: 200 MG, QD
     Route: 048
     Dates: start: 20250206
  7. CETIRIZINE [Concomitant]
     Active Substance: CETIRIZINE HYDROCHLORIDE
     Indication: Seasonal allergy
     Dosage: 10 MG, QD
     Route: 048
     Dates: start: 20250818
  8. ELIQUIS [Concomitant]
     Active Substance: APIXABAN
     Indication: Anticoagulant therapy
     Dosage: 2.5 MG, QD
     Route: 048
     Dates: start: 20250707
  9. GABAPENTIN [Concomitant]
     Active Substance: GABAPENTIN
     Indication: Neuralgia
     Dosage: 300 MG, Q12H
     Route: 048
     Dates: start: 20250207
  10. ISONIAZID [Concomitant]
     Active Substance: ISONIAZID
     Indication: Product used for unknown indication
     Dosage: TB TREATMENT
     Route: 048
     Dates: start: 20250610
  11. KEPPRA [Concomitant]
     Active Substance: LEVETIRACETAM
     Indication: Seizure
     Dosage: 500 MG, Q12H
     Route: 048
     Dates: start: 20251007
  12. KEPPRA [Concomitant]
     Active Substance: LEVETIRACETAM
     Indication: Prophylaxis
  13. LANOLIN [Concomitant]
     Active Substance: LANOLIN
     Indication: Dry skin
     Dosage: 50 %
     Route: 061
     Dates: start: 20250921
  14. LANOLIN [Concomitant]
     Active Substance: LANOLIN
     Indication: Skin irritation
  15. MELATONIN [Concomitant]
     Active Substance: MELATONIN
     Indication: Sleep disorder therapy
     Dosage: 3 MG, QD NIGHTLY
     Route: 048
     Dates: start: 20250829
  16. MIDODRINE [Concomitant]
     Active Substance: MIDODRINE
     Indication: Hypotension
     Dosage: 2.5 MG NIGHTLY
     Route: 048
     Dates: start: 20250210
  17. MIRALAX [Concomitant]
     Active Substance: POLYETHYLENE GLYCOL 3350
     Indication: Constipation
     Dosage: DAILY AS NEEDED
     Route: 048
     Dates: start: 20251005
  18. MUPIROCIN [Concomitant]
     Active Substance: MUPIROCIN
     Indication: Ingrowing nail
     Dosage: 2% OINTMENT
     Route: 061
     Dates: start: 20250909
  19. ONDANSETRON [Concomitant]
     Active Substance: ONDANSETRON
     Indication: Nausea
     Dosage: AS NEEDED EVERY 8 HOURS
     Route: 048
     Dates: start: 20250207
  20. ONDANSETRON [Concomitant]
     Active Substance: ONDANSETRON
     Indication: Vomiting
  21. POSACONAZOLE [Concomitant]
     Active Substance: POSACONAZOLE
     Indication: Antifungal treatment
     Dosage: 300 MG, QD
     Route: 048
     Dates: start: 20251007
  22. PYRIDOXINE [Concomitant]
     Active Substance: PYRIDOXINE
     Indication: Product used for unknown indication
     Dosage: 20 MG, QW TB TREATMENT
     Route: 048
     Dates: start: 20250610
  23. RIFAPENTINE [Concomitant]
     Active Substance: RIFAPENTINE
     Indication: Product used for unknown indication
     Dosage: TB TREATMENT
     Route: 048
     Dates: start: 20250610
  24. VALACYCLOVIR [Concomitant]
     Active Substance: VALACYCLOVIR HYDROCHLORIDE
     Indication: Antiviral treatment
     Dosage: 500 MG, Q12H
     Route: 048
     Dates: start: 20250207

REACTIONS (4)
  - Anaphylactic reaction [Unknown]
  - Toxicity to various agents [Unknown]
  - COVID-19 [Unknown]
  - Upper respiratory tract infection [Recovered/Resolved]

NARRATIVE: CASE EVENT DATE: 20250901
